FAERS Safety Report 21551272 (Version 1)
Quarter: 2022Q4

REPORT INFORMATION
  Report Type: Spontaneous
  Country: US (occurrence: US)
  Receive Date: 20221104
  Receipt Date: 20221104
  Transmission Date: 20230112
  Serious: Yes (Other)
  Sender: FDA-Public Use
  Company Number: US-BAYER-2022A151542

PATIENT
  Age: 73 Year

DRUGS (3)
  1. BAYER LOW DOSE [Suspect]
     Active Substance: ASPIRIN
  2. PREMARIN [Suspect]
     Active Substance: ESTROGENS, CONJUGATED
     Dosage: TAKE 3 TABLETS (3.75 MG TOTAL) BY MOUTH DAILY.
     Route: 048
     Dates: start: 20220101
  3. FLUCONAZOLE [Suspect]
     Active Substance: FLUCONAZOLE
     Indication: Fungal infection
     Dosage: TAKE 1 TABLET (150 MG TOTAL) BY MOUTH DAILY AS NEEDED
     Route: 048
     Dates: start: 20211211

REACTIONS (2)
  - Drug hypersensitivity [Unknown]
  - Haemorrhage [None]
